FAERS Safety Report 11857614 (Version 1)
Quarter: 2015Q4

REPORT INFORMATION
  Report Type: Spontaneous
  Country: US (occurrence: None)
  Receive Date: 20151221
  Receipt Date: 20151221
  Transmission Date: 20160305
  Serious: Yes (Other)
  Sender: FDA-Public Use
  Company Number: None

PATIENT

DRUGS (2)
  1. MAGNESIUM SULFATE 40MG/ML HOSPIRA [Suspect]
     Active Substance: MAGNESIUM SULFATE
     Indication: HYPOMAGNESAEMIA
     Dosage: 1 BAG PRN/AS NEEDED?MONTHS
     Route: 042
  2. MAGNESIUM SULFATE 40MG/ML HOSPIRA [Suspect]
     Active Substance: MAGNESIUM SULFATE
     Indication: ECLAMPSIA
     Dosage: 1 BAG PRN/AS NEEDED?MONTHS
     Route: 042

REACTIONS (1)
  - Product label confusion [None]

NARRATIVE: CASE EVENT DATE: 20151217
